FAERS Safety Report 6831484-7 (Version None)
Quarter: 2010Q3

REPORT INFORMATION
  Report Type: 
  Country: None (occurrence: None)
  Receive Date: 20100712
  Receipt Date: 20100702
  Transmission Date: 20110219
  Serious: Yes (Other)
  Sender: FDA-Public Use
  Company Number: B0664773A

PATIENT
  Age: 46 Year
  Sex: Female

DRUGS (1)
  1. MALANIL [Suspect]
     Indication: MALARIA PROPHYLAXIS
     Route: 065

REACTIONS (1)
  - HAEMOLYTIC ANAEMIA [None]
